FAERS Safety Report 5097473-0 (Version None)
Quarter: 2006Q3

REPORT INFORMATION
  Report Type: 
  Country: None (occurrence: None)
  Receive Date: 20060901
  Receipt Date: 20060622
  Transmission Date: 20061208
  Serious: Yes (Other)
  Sender: FDA-Public Use
  Company Number: 06071803

PATIENT
  Age: 85 Year
  Sex: Female
  Weight: 58.9676 kg

DRUGS (5)
  1. AMIODARONE HCL [Suspect]
     Indication: ATRIAL FIBRILLATION
     Dosage: 200MG, QD, ORAL
     Route: 048
     Dates: start: 20051010, end: 20060315
  2. TOPROL-XL [Concomitant]
  3. WARFARIN SODIUM [Concomitant]
  4. DIGITEK (DIGIXON) [Concomitant]
  5. ENSURE [Concomitant]

REACTIONS (4)
  - ANOREXIA [None]
  - DYSPNOEA [None]
  - WEIGHT DECREASED [None]
  - WEIGHT FLUCTUATION [None]
